FAERS Safety Report 6139716-8 (Version None)
Quarter: 2009Q2

REPORT INFORMATION
  Report Type: 
  Country: None (occurrence: None)
  Receive Date: 20090330
  Receipt Date: 20081224
  Transmission Date: 20091009
  Serious: Yes (Hospitalization)
  Sender: FDA-Public Use
  Company Number: 8039628

PATIENT
  Age: 61 Year
  Sex: Female
  Weight: 118.63 kg

DRUGS (16)
  1. LORTAB [Suspect]
     Dosage: 7.5 MG /D PO
     Route: 048
     Dates: start: 20061030, end: 20080626
  2. LORTAB [Suspect]
     Dosage: 30 MG 3/D PO
     Route: 048
     Dates: start: 20080628
  3. SU-011,428 [Suspect]
     Indication: RENAL CANCER
     Dosage: 50 MG /D PO
     Route: 048
     Dates: start: 20080321
  4. DARVOCET [Suspect]
     Dosage: 2 DF PRN PO
     Route: 048
     Dates: end: 20080626
  5. OXYCODONE HCL [Suspect]
     Dosage: 5 MG 4/D PO
     Route: 048
     Dates: end: 20080626
  6. BACTRIM [Concomitant]
  7. ACTOS [Concomitant]
  8. CYMBALTA [Concomitant]
  9. NEXIUM [Concomitant]
  10. GLUCOVANCE [Concomitant]
  11. LASIX [Concomitant]
  12. PROMETHAZINE [Concomitant]
  13. LIPITOR [Concomitant]
  14. MONTELUKAST SODIUM [Concomitant]
  15. IRON [Concomitant]
  16. ALBUTEROL [Concomitant]

REACTIONS (3)
  - CONFUSIONAL STATE [None]
  - NAUSEA [None]
  - VOMITING [None]
